FAERS Safety Report 5336499-6 (Version None)
Quarter: 2007Q2

REPORT INFORMATION
  Report Type: 
  Country: None (occurrence: None)
  Receive Date: 20070529
  Receipt Date: 20070522
  Transmission Date: 20071010
  Serious: Yes (Death)
  Sender: FDA-Public Use
  Company Number: US-ELI_LILLY_AND_COMPANY-US_0508121361

PATIENT

DRUGS (1)
  1. ZYPREXA [Suspect]
     Indication: TRISOMY 21
     Dosage: UNK, UNK
     Route: 048
     Dates: start: 20001016

REACTIONS (2)
  - DEATH [None]
  - DIABETES MELLITUS [None]
